FAERS Safety Report 5223844-5 (Version None)
Quarter: 2007Q1

REPORT INFORMATION
  Report Type: 
  Country: None (occurrence: None)
  Receive Date: 20070130
  Receipt Date: 20070125
  Transmission Date: 20070707
  Serious: No
  Sender: FDA-Public Use
  Company Number: US-ELI_LILLY_AND_COMPANY-US200701005098

PATIENT
  Age: 62 Year
  Sex: Female

DRUGS (4)
  1. OLANZAPINE [Suspect]
     Indication: BIPOLAR DISORDER
     Dosage: 10 MG, DAILY (1/D)
     Dates: start: 20070118, end: 20070119
  2. DEPAKOTE [Concomitant]
     Dosage: 500 MG, 2/D
  3. RISPERDAL [Concomitant]
     Dosage: 2 MG, UNKNOWN
  4. KLONOPIN [Concomitant]
     Dosage: 1 MG, EACH EVENING

REACTIONS (3)
  - HEAD INJURY [None]
  - PERIORBITAL HAEMATOMA [None]
  - SOMNOLENCE [None]
